FAERS Safety Report 7438606-8 (Version None)
Quarter: 2011Q2

REPORT INFORMATION
  Report Type: 
  Country: None (occurrence: None)
  Receive Date: 20110426
  Receipt Date: 20110421
  Transmission Date: 20111010
  Serious: Yes (Hospitalization, Other)
  Sender: FDA-Public Use
  Company Number: US-PFIZER INC-2009266905

PATIENT
  Sex: Male

DRUGS (2)
  1. HYDROCODONE [Concomitant]
     Indication: PAIN
     Dosage: UNK
     Dates: start: 19800101, end: 20100401
  2. CHANTIX [Suspect]
     Indication: SMOKING CESSATION THERAPY
     Dosage: 0.5 MG FOR 3 DAYS, 0.5 MG TWICE DAILY FOR 4 DAYS AND 1 MG TWICE DAILY
     Route: 048
     Dates: start: 20060724, end: 20061012

REACTIONS (12)
  - SUICIDE ATTEMPT [None]
  - HALLUCINATION [None]
  - SLEEP TERROR [None]
  - INTENTIONAL OVERDOSE [None]
  - HOMICIDAL IDEATION [None]
  - BIPOLAR DISORDER [None]
  - ABNORMAL DREAMS [None]
  - LOSS OF CONSCIOUSNESS [None]
  - INSOMNIA [None]
  - NAUSEA [None]
  - DEPRESSION [None]
  - AGGRESSION [None]
